FAERS Safety Report 9269928 (Version 2)
Quarter: 2013Q4

REPORT INFORMATION
  Report Type: Spontaneous
  Country: FR (occurrence: FR)
  Receive Date: 20130503
  Receipt Date: 20131016
  Transmission Date: 20140711
  Serious: Yes (Other)
  Sender: FDA-Public Use
  Company Number: FR-SANOFI-AVENTIS-2013SA045118

PATIENT
  Age: 38 Year
  Sex: Male

DRUGS (1)
  1. RIFINAH [Suspect]
     Indication: LATENT TUBERCULOSIS
     Dosage: 3 TABLETS DAILY EACH MORNING, 30 MINS BEFORE BREAKFAST DOSE:3 UNIT(S)
     Route: 048
     Dates: start: 20130115, end: 20130413

REACTIONS (3)
  - Tendon pain [Not Recovered/Not Resolved]
  - Arthralgia [Not Recovered/Not Resolved]
  - Arthralgia [Not Recovered/Not Resolved]
